FAERS Safety Report 15208199 (Version 1)
Quarter: 2018Q3

REPORT INFORMATION
  Report Type: Spontaneous
  Country: US (occurrence: US)
  Receive Date: 20180628
  Receipt Date: 20180628
  Transmission Date: 20181010
  Serious: Yes (Hospitalization)
  Sender: FDA-Public Use
  Company Number: None

PATIENT
  Age: 15 Year
  Sex: Female
  Weight: 68.3 kg

DRUGS (6)
  1. PREDNISONE. [Suspect]
     Active Substance: PREDNISONE
     Dates: end: 20180524
  2. CYTARABINE. [Suspect]
     Active Substance: CYTARABINE
     Dates: end: 20180522
  3. DAUNORUBICIN [Suspect]
     Active Substance: DAUNORUBICIN
     Dates: end: 20180518
  4. METHOTREXATE. [Suspect]
     Active Substance: METHOTREXATE
     Dates: end: 20180504
  5. ONCASPAR [Suspect]
     Active Substance: PEGASPARGASE
     Dates: end: 20180430
  6. VINCRISTINE [Suspect]
     Active Substance: VINCRISTINE
     Dates: end: 20180518

REACTIONS (7)
  - Pyrexia [None]
  - Hypotension [None]
  - Tachycardia [None]
  - C-reactive protein increased [None]
  - Blood lactic acid increased [None]
  - Septic shock [None]
  - Catheter site pain [None]

NARRATIVE: CASE EVENT DATE: 20180618
